FAERS Safety Report 5337665-6 (Version None)
Quarter: 2007Q2

REPORT INFORMATION
  Report Type: 
  Country: None (occurrence: None)
  Receive Date: 20070524
  Receipt Date: 20070516
  Transmission Date: 20071010
  Serious: Yes (Other)
  Sender: FDA-Public Use
  Company Number: TPA2007A01011

PATIENT
  Sex: Female

DRUGS (2)
  1. ROZEREM [Suspect]
     Dosage: PER ORAL
     Route: 048
  2. MULTIPLE UNKNOWN MEDICATION (ALL OTHER NON-THERAPEUTIC PRODUCTS) [Concomitant]

REACTIONS (1)
  - CONVULSION [None]
